FAERS Safety Report 10050196 (Version 1)
Quarter: 2014Q2

REPORT INFORMATION
  Report Type: Spontaneous
  Country: FR (occurrence: FR)
  Receive Date: 20140401
  Receipt Date: 20140401
  Transmission Date: 20141212
  Serious: Yes (Life-Threatening, Hospitalization)
  Sender: FDA-Public Use
  Company Number: FR-PFIZER INC-2014088087

PATIENT
  Age: 67 Year
  Sex: Male

DRUGS (17)
  1. PLAVIX [Concomitant]
     Dosage: 75 UNK, DAILY
  2. VASTEN [Concomitant]
     Dosage: 40 MG, DAILY
  3. MOPRAL [Concomitant]
     Dosage: 20 MG, DAILY
  4. INEGY [Concomitant]
  5. TERCIAN [Concomitant]
  6. FOSAMAX [Concomitant]
  7. SPIRIVA [Concomitant]
  8. SYMBICORT TURBUHALER [Concomitant]
  9. SUBUTEX [Concomitant]
     Dosage: 4 MG, DAILY
  10. CACIT VITAMINE D [Concomitant]
  11. ADRIBLASTINE [Suspect]
     Indication: HEPATOCELLULAR CARCINOMA
     Dosage: 50 MG, SINGLE
     Dates: start: 20120828, end: 20120828
  12. ADRIBLASTINE [Suspect]
     Dosage: 50 MG, SINGLE
     Dates: start: 20130429, end: 20130429
  13. ADRIBLASTINE [Suspect]
     Dosage: 50 MG, SINGLE
     Dates: start: 20130725, end: 20130725
  14. ADRIBLASTINE [Suspect]
     Dosage: 50 MG, SINGLE
     Route: 013
     Dates: start: 20131120, end: 20131120
  15. EFFEXOR [Concomitant]
     Dosage: 75 MG, DAILY
  16. ASPEGIC [Concomitant]
  17. COVERSYL [Concomitant]

REACTIONS (2)
  - Cholecystitis infective [Recovered/Resolved]
  - Biliary ischaemia [Recovered/Resolved]
